FAERS Safety Report 23263681 (Version 1)
Quarter: 2023Q4

REPORT INFORMATION
  Report Type: Spontaneous
  Country: US (occurrence: None)
  Receive Date: 20231205
  Receipt Date: 20231205
  Transmission Date: 20240109
  Serious: Yes (Hospitalization)
  Sender: FDA-Public Use
  Company Number: None

PATIENT
  Age: 62 Year
  Sex: Male

DRUGS (1)
  1. PREDNISONE [Suspect]
     Active Substance: PREDNISONE
     Dates: start: 20230512, end: 20231118

REACTIONS (3)
  - Hypomania [None]
  - Neurosarcoidosis [None]
  - Disease progression [None]

NARRATIVE: CASE EVENT DATE: 20231118
